FAERS Safety Report 9282879 (Version 4)
Quarter: 2013Q2

REPORT INFORMATION
  Report Type: Report from Study
  Country: CA (occurrence: CA)
  Receive Date: 20130510
  Receipt Date: 20130607
  Transmission Date: 20140414
  Serious: Yes (Hospitalization)
  Sender: FDA-Public Use
  Company Number: PHHY2012CA111878

PATIENT
  Age: 57 Year
  Sex: Female

DRUGS (1)
  1. ZOMETA [Suspect]
     Indication: BREAST CANCER METASTATIC
     Dosage: 3.5 MG, ONCE A MONTH
     Route: 042
     Dates: start: 20121106

REACTIONS (12)
  - Hypercalcaemia [Recovering/Resolving]
  - Stress [Unknown]
  - Emotional distress [Unknown]
  - Rib fracture [Unknown]
  - Device infusion issue [Unknown]
  - Anxiety [Recovering/Resolving]
  - Blood pressure increased [Unknown]
  - Blood pressure decreased [Unknown]
  - Constipation [Unknown]
  - Pain [Unknown]
  - Malaise [Unknown]
  - Blood creatinine increased [Unknown]
